FAERS Safety Report 11788427 (Version 2)
Quarter: 2015Q4

REPORT INFORMATION
  Report Type: Spontaneous
  Country: US (occurrence: US)
  Receive Date: 20151201
  Receipt Date: 20151217
  Transmission Date: 20160305
  Serious: Yes (Hospitalization)
  Sender: FDA-Public Use
  Company Number: US-BEH-2015056004

PATIENT
  Sex: Female
  Weight: 96 kg

DRUGS (25)
  1. HIZENTRA [Suspect]
     Active Substance: HUMAN IMMUNOGLOBULIN G
     Indication: LUNG DISORDER
     Route: 058
  2. HIZENTRA [Suspect]
     Active Substance: HUMAN IMMUNOGLOBULIN G
     Indication: LUNG DISORDER
     Route: 058
  3. ASPIRIN. [Concomitant]
     Active Substance: ASPIRIN
  4. ALBUTEROL. [Concomitant]
     Active Substance: ALBUTEROL
  5. BROVANA [Concomitant]
     Active Substance: ARFORMOTEROL TARTRATE
  6. LEVOTHYROXINE. [Concomitant]
     Active Substance: LEVOTHYROXINE
  7. PULMICORT TURBUHALER [Concomitant]
     Active Substance: BUDESONIDE
  8. GARLIC. [Concomitant]
     Active Substance: GARLIC
  9. FLEXERIL [Concomitant]
     Active Substance: CYCLOBENZAPRINE HYDROCHLORIDE
  10. WELLBUTRIN [Concomitant]
     Active Substance: BUPROPION HYDROCHLORIDE
  11. XYZAL [Concomitant]
     Active Substance: LEVOCETIRIZINE DIHYDROCHLORIDE
  12. LORAZEPAM. [Concomitant]
     Active Substance: LORAZEPAM
  13. PLAVIX [Concomitant]
     Active Substance: CLOPIDOGREL BISULFATE
  14. EPIPEN [Concomitant]
     Active Substance: EPINEPHRINE
  15. OXYGEN. [Concomitant]
     Active Substance: OXYGEN
  16. SINGULAIR [Concomitant]
     Active Substance: MONTELUKAST SODIUM
  17. COMPLETE MULTIVITAMIN [Concomitant]
     Active Substance: VITAMINS
  18. POTASSIUM CL ER [Concomitant]
  19. NEXIUM [Concomitant]
     Active Substance: ESOMEPRAZOLE MAGNESIUM
  20. LIPITOR [Concomitant]
     Active Substance: ATORVASTATIN CALCIUM
  21. DIPHENHYDRAMINE. [Concomitant]
     Active Substance: DIPHENHYDRAMINE
  22. SPIRIVA [Concomitant]
     Active Substance: TIOTROPIUM BROMIDE MONOHYDRATE
  23. NAC [Concomitant]
  24. DILTIAZEM HYDROCHLORIDE EXTENDED RELEASE [Concomitant]
     Active Substance: DILTIAZEM HYDROCHLORIDE
  25. FISH OIL [Concomitant]
     Active Substance: FISH OIL

REACTIONS (1)
  - Cardiac disorder [Unknown]
